FAERS Safety Report 8038040-6 (Version None)
Quarter: 2012Q1

REPORT INFORMATION
  Report Type: 
  Country: None (occurrence: None)
  Receive Date: 20120111
  Receipt Date: 20120110
  Transmission Date: 20120608
  Serious: Yes (Death, Hospitalization)
  Sender: FDA-Public Use
  Company Number: US-ABBOTT-11P-163-0885512-00

PATIENT
  Sex: Male
  Weight: 59.02 kg

DRUGS (9)
  1. SPIRONOLACTONE [Concomitant]
     Indication: FLUID RETENTION
  2. PROPRANOLOL [Concomitant]
     Indication: HYPERTENSION
     Dates: end: 20111201
  3. UNKNOWN CHEMOTHERAPY [Suspect]
     Indication: NEOPLASM MALIGNANT
     Dates: start: 20111101
  4. CELEXA [Concomitant]
     Indication: DEPRESSION
     Dates: end: 20111201
  5. VITAMIN D [Concomitant]
     Indication: VITAMIN SUPPLEMENTATION
  6. ANDROGEL [Suspect]
     Indication: BLOOD TESTOSTERONE DECREASED
     Dates: start: 20100101, end: 20111201
  7. VITAMIN TAB [Concomitant]
     Indication: VITAMIN SUPPLEMENTATION
  8. SPIRONOLACTONE [Concomitant]
     Indication: LIVER INJURY
  9. VITAMIN C [Concomitant]
     Indication: VITAMIN SUPPLEMENTATION

REACTIONS (5)
  - NEOPLASM MALIGNANT [None]
  - MOBILITY DECREASED [None]
  - NAUSEA [None]
  - TONGUE CANCER METASTATIC [None]
  - DIARRHOEA [None]
